FAERS Safety Report 22298938 (Version 1)
Quarter: 2023Q2

REPORT INFORMATION
  Report Type: Spontaneous
  Country: JP (occurrence: JP)
  Receive Date: 20230509
  Receipt Date: 20230509
  Transmission Date: 20230722
  Serious: Yes (Other)
  Sender: FDA-Public Use
  Company Number: JP-JNJFOC-20230239238

PATIENT
  Age: 9 Year
  Sex: Male

DRUGS (7)
  1. OPSUMIT [Suspect]
     Active Substance: MACITENTAN
     Indication: Pulmonary vascular disorder
     Dosage: 1-2MG/KG
     Route: 048
  2. OPSUMIT [Suspect]
     Active Substance: MACITENTAN
     Route: 048
  3. OPSUMIT [Suspect]
     Active Substance: MACITENTAN
     Dosage: DOSE UNKNOWN, GRADUALLY DECREASED
     Route: 048
  4. ADCIRCA [Suspect]
     Active Substance: TADALAFIL
     Indication: Pulmonary vascular disorder
     Dosage: DOSE UNKNOWN
     Route: 048
  5. ADCIRCA [Suspect]
     Active Substance: TADALAFIL
     Dosage: DOSE UNKNOWN
     Route: 048
  6. ADCIRCA [Suspect]
     Active Substance: TADALAFIL
     Dosage: DOSE UNKNOWN, GRADUALLY DECREASED
     Route: 048
  7. OXYGEN [Concomitant]
     Active Substance: OXYGEN
     Dosage: DOSE UNKNOWN
     Route: 055

REACTIONS (4)
  - Collateral circulation [Recovered/Resolved]
  - Off label use [Unknown]
  - Wrong technique in product usage process [Unknown]
  - Off label use [Unknown]
